FAERS Safety Report 7226932-7 (Version None)
Quarter: 2011Q1

REPORT INFORMATION
  Report Type: 
  Country: None (occurrence: None)
  Receive Date: 20110111
  Receipt Date: 20110111
  Transmission Date: 20110831
  Serious: Yes (Other)
  Sender: FDA-Public Use
  Company Number: None

PATIENT
  Age: 87 Year
  Sex: Female
  Weight: 63.5036 kg

DRUGS (2)
  1. TERBINAFINE HCL [Suspect]
     Indication: TINEA PEDIS
     Dosage: 250 MG 1 A DAY
     Dates: start: 20101208
  2. TERBINAFINE HCL [Suspect]
     Indication: TINEA PEDIS
     Dosage: 250 MG 1 A DAY
     Dates: start: 20101112

REACTIONS (5)
  - RASH GENERALISED [None]
  - NAUSEA [None]
  - DYSPEPSIA [None]
  - DIARRHOEA [None]
  - ABDOMINAL PAIN UPPER [None]
